FAERS Safety Report 11843387 (Version 1)
Quarter: 2015Q4

REPORT INFORMATION
  Report Type: Spontaneous
  Country: US (occurrence: US)
  Receive Date: 20151217
  Receipt Date: 20151217
  Transmission Date: 20160305
  Serious: Yes (Other)
  Sender: FDA-Public Use
  Company Number: US-MACLEODS PHARMACEUTICALS US LTD-MAC2015002235

PATIENT

DRUGS (9)
  1. METHADONE [Suspect]
     Active Substance: METHADONE HYDROCHLORIDE
     Indication: RESTLESS LEGS SYNDROME
     Dosage: 5 MG, NOCTE TWO TO THREE TIMES A WEEK
     Route: 065
  2. METHADONE [Suspect]
     Active Substance: METHADONE HYDROCHLORIDE
     Dosage: 15 MG,QD
     Route: 065
  3. OXYCODONE [Suspect]
     Active Substance: OXYCODONE
     Indication: RESTLESS LEGS SYNDROME
     Dosage: 10 MG, TID
     Route: 065
  4. CLONAZEPAM. [Concomitant]
     Active Substance: CLONAZEPAM
     Indication: RESTLESS LEGS SYNDROME
     Dosage: 0.5 MG, NOCTE
     Route: 065
  5. TRAMADOL. [Suspect]
     Active Substance: TRAMADOL
     Indication: RESTLESS LEGS SYNDROME
     Dosage: UNK
     Route: 065
  6. TRAMADOL. [Suspect]
     Active Substance: TRAMADOL
     Dosage: UNK
     Route: 065
  7. TRAMADOL. [Suspect]
     Active Substance: TRAMADOL
     Dosage: UNK
     Route: 065
  8. ROPINIROLE. [Suspect]
     Active Substance: ROPINIROLE
     Indication: RESTLESS LEGS SYNDROME
     Dosage: UNK
     Route: 065
  9. ROPINIROLE. [Suspect]
     Active Substance: ROPINIROLE
     Dosage: UNK

REACTIONS (3)
  - Drug tolerance [Recovering/Resolving]
  - Hyperaesthesia [Recovering/Resolving]
  - Condition aggravated [Recovering/Resolving]
